FAERS Safety Report 11054864 (Version 1)
Quarter: 2015Q2

REPORT INFORMATION
  Report Type: Spontaneous
  Country: US (occurrence: US)
  Receive Date: 20150422
  Receipt Date: 20150422
  Transmission Date: 20150821
  Serious: Yes (Other)
  Sender: FDA-Public Use
  Company Number: US-CIPLA LTD.-2015US03203

PATIENT

DRUGS (3)
  1. CARBOPLATIN. [Suspect]
     Active Substance: CARBOPLATIN
     Indication: BREAST CANCER FEMALE
     Dosage: AUC 2, ON DAY 1 AND DAY 8, EVERY 21 DAYS FOR 6 CYCLES
     Route: 042
  2. GEMCITABINE [Suspect]
     Active Substance: GEMCITABINE\GEMCITABINE HYDROCHLORIDE
     Indication: BREAST CANCER FEMALE
     Dosage: 1000 MG/M2, ON DAY 1 AND 8, EVERY 21 DAYS FOR 6 CYCLES
     Route: 042
  3. INIPARIB [Suspect]
     Active Substance: INIPARIB
     Indication: BREAST CANCER FEMALE
     Dosage: 5.6 MG/KG, ON DAYS 1, 4, 8, AND 11, EVERY 21 DAYS FOR 6 CYCLES
     Route: 042

REACTIONS (1)
  - Pulmonary embolism [Unknown]
